FAERS Safety Report 26022589 (Version 1)
Quarter: 2025Q4

REPORT INFORMATION
  Report Type: Spontaneous
  Country: US (occurrence: None)
  Receive Date: 20251110
  Receipt Date: 20251110
  Transmission Date: 20260118
  Serious: Yes (Hospitalization)
  Sender: FDA-CTU
  Company Number: None

PATIENT
  Sex: Male

DRUGS (10)
  1. POMALYST [Suspect]
     Active Substance: POMALIDOMIDE
     Indication: Plasma cell myeloma
     Dosage: ? TAKE 1 CAPSULE BY MOUTH EVERY DAY FOR 21 DAYS FOLLOWED BY 7 DAYS OFF
     Route: 048
     Dates: start: 20250228
  2. ACYCLOVIR CAP 200MG [Concomitant]
  3. ASPIRIN [Concomitant]
     Active Substance: ASPIRIN
  4. BACTRIM TAB 400-80MG [Concomitant]
  5. DEXAMETHASONE [Concomitant]
     Active Substance: DEXAMETHASONE
  6. ELIOUIS  TAB 5MG [Concomitant]
  7. ENTECAVIR [Concomitant]
     Active Substance: ENTECAVIR
  8. ESCITALOPRAM [Concomitant]
     Active Substance: ESCITALOPRAM OXALATE
  9. HYDROCHLOROT TAB 25MG [Concomitant]
  10. LIPITOR TAB 40MG [Concomitant]

REACTIONS (4)
  - Nausea [None]
  - Vomiting [None]
  - Proteinuria [None]
  - Atrial fibrillation [None]
